FAERS Safety Report 24570979 (Version 2)
Quarter: 2024Q4

REPORT INFORMATION
  Report Type: Report from Study
  Country: US (occurrence: US)
  Receive Date: 20241101
  Receipt Date: 20241125
  Transmission Date: 20250114
  Serious: Yes (Hospitalization)
  Sender: ABBVIE
  Company Number: US-ABBVIE-5984635

PATIENT
  Age: 35 Year
  Sex: Female

DRUGS (2)
  1. HUMIRA [Suspect]
     Active Substance: ADALIMUMAB
     Indication: Hidradenitis
     Dosage: CITRATE FREE?FORM STRENGTH:40 MILLIGRAM
     Route: 058
     Dates: start: 20200125
  2. HUMIRA [Suspect]
     Active Substance: ADALIMUMAB
     Indication: Rheumatoid arthritis

REACTIONS (4)
  - Ovarian neoplasm [Recovering/Resolving]
  - Malaise [Not Recovered/Not Resolved]
  - Post procedural complication [Unknown]
  - Cough [Unknown]

NARRATIVE: CASE EVENT DATE: 20240701
